FAERS Safety Report 5352908-0 (Version None)
Quarter: 2007Q2

REPORT INFORMATION
  Report Type: 
  Country: None (occurrence: None)
  Receive Date: 20070611
  Receipt Date: 20070530
  Transmission Date: 20071010
  Serious: Yes (Other)
  Sender: FDA-Public Use
  Company Number: BR-PFIZER INC-2004033553

PATIENT
  Sex: Female
  Weight: 52 kg

DRUGS (22)
  1. ZOLOFT [Suspect]
     Indication: DEPRESSION
     Route: 048
  2. ZOLOFT [Suspect]
     Indication: BIPOLAR DISORDER
  3. ZOLOFT [Suspect]
     Indication: PANIC REACTION
  4. PROVERA [Suspect]
     Indication: UTERINE HAEMORRHAGE
     Route: 048
  5. TINIDAZOLE/TIOCONAZOLE [Suspect]
     Indication: VAGINITIS BACTERIAL
     Route: 067
  6. CLONAZEPAM [Suspect]
  7. DIANE [Suspect]
     Indication: ORAL CONTRACEPTION
     Dosage: FREQ:DAILY
     Route: 048
  8. PAROXETINE [Suspect]
     Indication: BIPOLAR DISORDER
     Route: 048
     Dates: start: 20040101, end: 20061214
  9. RIVOTRIL [Concomitant]
     Indication: BIPOLAR DISORDER
     Route: 048
  10. PIROXICAM [Concomitant]
     Route: 048
  11. ROHYPNOL [Concomitant]
     Route: 048
  12. L-LYSINE [Concomitant]
     Route: 048
  13. AMPLICTIL [Concomitant]
     Route: 065
  14. HERBAL PREPARATION [Concomitant]
     Route: 048
  15. BETAGAN [Concomitant]
     Route: 061
  16. ALL OTHER THERAPEUTIC PRODUCTS [Concomitant]
  17. MIDAZOLAM HCL [Concomitant]
  18. MULTIVITAMIN [Concomitant]
  19. FENERGAN [Concomitant]
     Route: 065
  20. LORATADINE [Concomitant]
  21. SYNTHROID [Concomitant]
     Route: 048
     Dates: start: 20020101
  22. VENLAFAXIINE HCL [Concomitant]
     Indication: MAJOR DEPRESSION
     Dates: start: 20070412, end: 20070528

REACTIONS (52)
  - ABDOMINAL PAIN [None]
  - ABORTION [None]
  - ALCOHOLISM [None]
  - AMENORRHOEA [None]
  - ANXIETY [None]
  - BIPOLAR DISORDER [None]
  - BLOOD PRESSURE DECREASED [None]
  - BLOOD PROLACTIN INCREASED [None]
  - BREAST PAIN [None]
  - CONFUSIONAL STATE [None]
  - CONSTIPATION [None]
  - CRYING [None]
  - DECREASED APPETITE [None]
  - DEPRESSION [None]
  - DIZZINESS [None]
  - DRUG INEFFECTIVE [None]
  - DYSKINESIA [None]
  - EUPHORIC MOOD [None]
  - EYELID PTOSIS [None]
  - FORMICATION [None]
  - GALACTORRHOEA [None]
  - GRIP STRENGTH DECREASED [None]
  - HAEMORRHAGE [None]
  - HEADACHE [None]
  - HYPERSENSITIVITY [None]
  - HYPOAESTHESIA [None]
  - HYPOTHYROIDISM [None]
  - INFLUENZA LIKE ILLNESS [None]
  - INSOMNIA [None]
  - IRRITABILITY [None]
  - MENSTRUAL DISORDER [None]
  - MUSCULOSKELETAL PAIN [None]
  - NAUSEA [None]
  - NECK PAIN [None]
  - PAIN [None]
  - PAIN IN EXTREMITY [None]
  - PHOBIA [None]
  - PREMENSTRUAL SYNDROME [None]
  - RHINITIS [None]
  - SEBORRHOEIC DERMATITIS [None]
  - SHOCK [None]
  - SINUSITIS [None]
  - SKIN LESION [None]
  - SOMNOLENCE [None]
  - STRESS [None]
  - SUICIDE ATTEMPT [None]
  - TACHYCARDIA [None]
  - TENDONITIS [None]
  - TREMOR [None]
  - VAGINAL INFECTION [None]
  - WEIGHT DECREASED [None]
  - WEIGHT INCREASED [None]
